FAERS Safety Report 18683090 (Version 3)
Quarter: 2022Q3

REPORT INFORMATION
  Report Type: Report from Study
  Country: US (occurrence: US)
  Receive Date: 20201230
  Receipt Date: 20220701
  Transmission Date: 20221026
  Serious: Yes (Hospitalization, Other)
  Sender: FDA-Public Use
  Company Number: US-BRISTOL-MYERS SQUIBB COMPANY-BMS-2020-111017

PATIENT
  Age: 75 Year
  Sex: Female

DRUGS (1)
  1. ELIQUIS [Suspect]
     Active Substance: APIXABAN
     Indication: Cerebrovascular accident prophylaxis
     Dosage: UNK UNK, BID
     Route: 065
     Dates: start: 20171001

REACTIONS (7)
  - Pneumonia [Unknown]
  - Seizure [Unknown]
  - Dementia Alzheimer^s type [Unknown]
  - Influenza [Unknown]
  - Contusion [Unknown]
  - Skin laceration [Unknown]
  - Total lung capacity decreased [Unknown]

NARRATIVE: CASE EVENT DATE: 20211101
